FAERS Safety Report 9298304 (Version 2)
Quarter: 2014Q1

REPORT INFORMATION
  Report Type: Report from Study
  Country: JP (occurrence: JP)
  Receive Date: 20130520
  Receipt Date: 20140310
  Transmission Date: 20141002
  Serious: Yes (Other)
  Sender: FDA-Public Use
  Company Number: JP-VERTEX PHARMACEUTICALS INC-AE-2012-011494

PATIENT
  Age: 59 Year
  Sex: Female

DRUGS (15)
  1. VX-950 (TELAPREVIR) [Suspect]
     Indication: CHRONIC HEPATITIS C
     Dosage: 1500 MG, QD
     Route: 048
     Dates: start: 20120612, end: 20120903
  2. REBETOL [Suspect]
     Indication: CHRONIC HEPATITIS C
     Dosage: 400 MG, QD
     Route: 048
     Dates: start: 20120612, end: 20120723
  3. REBETOL [Suspect]
     Dosage: 200 MG, QD
     Route: 048
     Dates: start: 20120724, end: 20120730
  4. REBETOL [Suspect]
     Dosage: 100 MG, QD
     Route: 048
     Dates: start: 20120731, end: 20120903
  5. REBETOL [Suspect]
     Dosage: 200 MG, QD
     Route: 048
     Dates: start: 20120904, end: 20120924
  6. REBETOL [Suspect]
     Dosage: 400 MG, QD
     Route: 048
     Dates: start: 20120925, end: 20121022
  7. REBETOL [Suspect]
     Dosage: 600 MG, QD
     Route: 048
     Dates: start: 20121023, end: 20121126
  8. PEGINTRON [Suspect]
     Indication: CHRONIC HEPATITIS C
     Dosage: 1.2 ?G/KG, QW
     Route: 058
     Dates: start: 20120612, end: 20121120
  9. URSO [Concomitant]
     Dosage: 300 MG, QD
     Route: 048
  10. THYRADIN [Concomitant]
     Dosage: 100 ?G, QD
     Route: 048
  11. TAKEPRON [Concomitant]
     Dosage: 15 MG, QD
     Route: 048
  12. NOVOLIN R [Concomitant]
     Dosage: 24 DF, QD
     Route: 058
  13. NOVOLIN N [Concomitant]
     Dosage: 8 DF, QD
     Route: 058
  14. LOXOPROFEN [Concomitant]
     Dosage: 60 MG, QD
     Route: 048
     Dates: start: 20120611, end: 20120709
  15. MUCOSTA [Concomitant]
     Dosage: 100 MG, QD
     Route: 048
     Dates: start: 20120611, end: 20120709

REACTIONS (1)
  - Retinopathy [Recovering/Resolving]
